FAERS Safety Report 6368613-8 (Version None)
Quarter: 2009Q3

REPORT INFORMATION
  Report Type: 
  Country: None (occurrence: None)
  Receive Date: 20090922
  Receipt Date: 20090911
  Transmission Date: 20100115
  Serious: Yes (Other)
  Sender: FDA-Public Use
  Company Number: US-GILEAD-2009-0024236

PATIENT
  Sex: Female

DRUGS (1)
  1. ATRIPLA [Suspect]
     Indication: HIV INFECTION

REACTIONS (11)
  - ABNORMAL DREAMS [None]
  - CONVULSION [None]
  - DERMATITIS ACNEIFORM [None]
  - DIZZINESS [None]
  - DYSGEUSIA [None]
  - FALL [None]
  - HYPOAESTHESIA [None]
  - LIMB INJURY [None]
  - MELANOCYTIC NAEVUS [None]
  - NAUSEA [None]
  - VOMITING [None]
